APPROVED DRUG PRODUCT: ATROPINE SULFATE
Active Ingredient: ATROPINE SULFATE
Strength: 8MG/20ML (0.4MG/ML)
Dosage Form/Route: SOLUTION;INTRAVENOUS, INTRAMUSCULAR, SUBCUTANEOUS, INTRAOSSEOUS, ENDOTRACHEAL
Application: N209260 | Product #001 | TE Code: AP
Applicant: FRESENIUS KABI USA LLC
Approved: Jan 26, 2018 | RLD: Yes | RS: Yes | Type: RX